FAERS Safety Report 16853329 (Version 1)
Quarter: 2019Q3

REPORT INFORMATION
  Report Type: Spontaneous
  Country: DE (occurrence: DE)
  Receive Date: 20190925
  Receipt Date: 20190925
  Transmission Date: 20191005
  Serious: Yes (Life-Threatening, Hospitalization)
  Sender: FDA-Public Use
  Company Number: DE-ANIPHARMA-2019-DE-000132

PATIENT
  Age: 44 Year
  Sex: Male

DRUGS (11)
  1. LERCANIDIPINE [Concomitant]
     Active Substance: LERCANIDIPINE
     Dosage: 2 DF BID
     Route: 065
  2. METOPROLOL SUCCINATE. [Suspect]
     Active Substance: METOPROLOL SUCCINATE
     Dosage: 0.5 DF DAILY
     Route: 050
  3. SECUKINUMAB. [Suspect]
     Active Substance: SECUKINUMAB
     Dosage: 300 MG MONTH
     Route: 058
  4. TORASEMIDE [Concomitant]
     Active Substance: TORSEMIDE
     Dosage: 0.5 DF BID
     Route: 065
  5. CANDESARTAN CILEXETIL. [Suspect]
     Active Substance: CANDESARTAN CILEXETIL
     Indication: PRODUCT USED FOR UNKNOWN INDICATION
     Dosage: UNKNOWN
     Dates: start: 20190524
  6. EPORATIO [Concomitant]
     Active Substance: ERYTHROPOIETIN
     Dosage: 1 DF QD
     Route: 065
  7. CALCIUM CITRATE [Concomitant]
     Active Substance: CALCIUM CITRATE
     Dosage: 1 DF QD
     Route: 065
  8. METOPROLOL. [Concomitant]
     Active Substance: METOPROLOL
     Dosage: 0.5 DF QD
     Route: 065
  9. LEFAX [Concomitant]
     Active Substance: DIMETHICONE
     Dosage: UNK UNK, PRN
     Route: 065
  10. ALLOPURINOL. [Concomitant]
     Active Substance: ALLOPURINOL
     Dosage: UNKNOWN
     Route: 065
  11. COLECALCIFEROL [Concomitant]
     Active Substance: CHOLECALCIFEROL
     Dosage: 1 DF QD
     Route: 065

REACTIONS (11)
  - Skin plaque [Recovered/Resolved]
  - Pyrexia [Unknown]
  - Psoriasis [Unknown]
  - Hyperuricaemia [Unknown]
  - Blood pressure increased [Unknown]
  - Hypertension [Unknown]
  - Diarrhoea [Unknown]
  - Urinary incontinence [Unknown]
  - General physical health deterioration [Unknown]
  - Pneumonia [Recovered/Resolved]
  - Productive cough [Unknown]

NARRATIVE: CASE EVENT DATE: 201905
